FAERS Safety Report 10592558 (Version 6)
Quarter: 2016Q2

REPORT INFORMATION
  Report Type: Spontaneous
  Country: US (occurrence: US)
  Receive Date: 20141119
  Receipt Date: 20160414
  Transmission Date: 20160815
  Serious: No
  Sender: FDA-Public Use
  Company Number: US-PFIZER INC-2014316520

PATIENT
  Age: 75 Year
  Sex: Female
  Weight: 50 kg

DRUGS (2)
  1. ATORVASTATIN [Suspect]
     Active Substance: ATORVASTATIN
     Dosage: UNK
     Dates: start: 2014
  2. ATORVASTATIN [Suspect]
     Active Substance: ATORVASTATIN
     Dosage: 20 MG, 1X/DAY (AT NIGHT)
     Route: 048
     Dates: start: 2014, end: 2014

REACTIONS (13)
  - Blood cholesterol increased [Unknown]
  - Muscular weakness [Recovered/Resolved]
  - Pain in extremity [Unknown]
  - Reaction to drug excipients [Unknown]
  - Gait disturbance [Recovered/Resolved]
  - Malaise [Recovered/Resolved]
  - Myalgia [Unknown]
  - Muscle tightness [Unknown]
  - Drug hypersensitivity [Unknown]
  - Muscle spasms [Recovered/Resolved]
  - Blood triglycerides increased [Unknown]
  - Joint lock [Unknown]
  - Middle insomnia [Unknown]
